FAERS Safety Report 10728300 (Version 2)
Quarter: 2015Q1

REPORT INFORMATION
  Report Type: Spontaneous
  Country: TR (occurrence: TR)
  Receive Date: 20150121
  Receipt Date: 20150122
  Transmission Date: 20150721
  Serious: Yes (Life-Threatening, Hospitalization)
  Sender: FDA-Public Use
  Company Number: TR-ROCHE-1523921

PATIENT
  Age: 37 Year
  Sex: Female

DRUGS (3)
  1. HITRIZIN [Concomitant]
     Route: 065
  2. KESTINE [Concomitant]
     Active Substance: EBASTINE
     Route: 065
  3. XOLAIR [Suspect]
     Active Substance: OMALIZUMAB
     Indication: CHRONIC SPONTANEOUS URTICARIA
     Dosage: 1 DOSE
     Route: 058
     Dates: start: 20150108, end: 20150108

REACTIONS (4)
  - Vitamin B12 decreased [Unknown]
  - Vitamin A decreased [Unknown]
  - Blood folate decreased [Unknown]
  - Anaphylactic reaction [Recovered/Resolved]

NARRATIVE: CASE EVENT DATE: 20150108
